FAERS Safety Report 7429186-1 (Version None)
Quarter: 2011Q2

REPORT INFORMATION
  Report Type: 
  Country: None (occurrence: None)
  Receive Date: 20110421
  Receipt Date: 20110405
  Transmission Date: 20111010
  Serious: Yes (Hospitalization, Disabling)
  Sender: FDA-Public Use
  Company Number: JP-SANOFI-AVENTIS-2011SA022046

PATIENT
  Age: 86 Year

DRUGS (2)
  1. DEXAMETHASONE [Concomitant]
     Route: 065
  2. DOCETAXEL [Suspect]
     Indication: PROSTATE CANCER
     Route: 041
     Dates: start: 20080720, end: 20090203

REACTIONS (1)
  - CEREBRAL HAEMORRHAGE [None]
